FAERS Safety Report 5960124-4 (Version None)
Quarter: 2008Q4

REPORT INFORMATION
  Report Type: 
  Country: None (occurrence: None)
  Receive Date: 20081120
  Receipt Date: 20081118
  Transmission Date: 20090506
  Serious: Yes (Life-Threatening)
  Sender: FDA-Public Use
  Company Number: JP-AVENTIS-200813341JP

PATIENT
  Age: 64 Year
  Sex: Male
  Weight: 43.8 kg

DRUGS (4)
  1. TAXOTERE [Suspect]
     Indication: HEAD AND NECK CANCER
     Route: 041
     Dates: start: 20080828, end: 20080828
  2. DEPAS [Concomitant]
  3. KYTRIL                             /01178101/ [Concomitant]
     Route: 042
     Dates: start: 20080828, end: 20080828
  4. DECADRON [Concomitant]
     Route: 042
     Dates: start: 20080828, end: 20080828

REACTIONS (4)
  - CHEILITIS [None]
  - NEUTROPHIL COUNT DECREASED [None]
  - PHARYNGEAL OEDEMA [None]
  - WHITE BLOOD CELL COUNT DECREASED [None]
